FAERS Safety Report 17191291 (Version 4)
Quarter: 2020Q1

REPORT INFORMATION
  Report Type: Report from Study
  Country: US (occurrence: US)
  Receive Date: 20191223
  Receipt Date: 20200330
  Transmission Date: 20200409
  Serious: No
  Sender: FDA-Public Use
  Company Number: NVSC2019US075817

PATIENT

DRUGS (1)
  1. COSENTYX [Suspect]
     Active Substance: SECUKINUMAB
     Indication: PSORIATIC ARTHROPATHY
     Dosage: UNK
     Route: 065

REACTIONS (6)
  - Chest pain [Unknown]
  - Nasal disorder [Unknown]
  - Oropharyngeal pain [Unknown]
  - Cough [Unknown]
  - Skin plaque [Unknown]
  - Nasopharyngitis [Unknown]
